FAERS Safety Report 9015876 (Version 1)
Quarter: 2013Q1

REPORT INFORMATION
  Report Type: Spontaneous
  Country: US (occurrence: US)
  Receive Date: 20130116
  Receipt Date: 20130116
  Transmission Date: 20140127
  Serious: Yes (Other)
  Sender: FDA-Public Use
  Company Number: US-PFIZER INC-2012322149

PATIENT
  Age: 62 Year
  Sex: Male

DRUGS (2)
  1. SUNITINIB MALATE [Suspect]
     Dosage: UNK
  2. SINEMET [Suspect]
     Dosage: UNK

REACTIONS (1)
  - Parkinson^s disease [Unknown]
